FAERS Safety Report 7475082-3 (Version None)
Quarter: 2011Q2

REPORT INFORMATION
  Report Type: 
  Country: None (occurrence: None)
  Receive Date: 20110512
  Receipt Date: 20110505
  Transmission Date: 20111010
  Serious: Yes (Hospitalization)
  Sender: FDA-Public Use
  Company Number: FR-NOVOPROD-327845

PATIENT
  Sex: Female

DRUGS (3)
  1. AMARYL [Concomitant]
     Dosage: 4 G, QD
     Route: 048
  2. METFORMIN HCL [Concomitant]
     Dosage: 3 G, QD
     Route: 048
  3. VICTOZA [Suspect]
     Indication: PRODUCT USED FOR UNKNOWN INDICATION
     Dosage: 0.6 MG, QD
     Route: 058

REACTIONS (1)
  - SUBILEUS [None]
